FAERS Safety Report 7635458-8 (Version None)
Quarter: 2011Q3

REPORT INFORMATION
  Report Type: 
  Country: None (occurrence: None)
  Receive Date: 20110726
  Receipt Date: 20110726
  Transmission Date: 20111222
  Serious: Yes (Life-Threatening, Hospitalization)
  Sender: FDA-Public Use
  Company Number: None

PATIENT
  Age: 34 Year
  Sex: Female

DRUGS (2)
  1. TYLENOL-500 [Suspect]
     Dosage: UNKNOWN
     Route: 048
     Dates: start: 20110711, end: 20110711
  2. VODKA [Concomitant]
     Route: 048

REACTIONS (9)
  - ALCOHOL USE [None]
  - WHITE BLOOD CELL COUNT INCREASED [None]
  - ABORTION SPONTANEOUS [None]
  - PLATELET COUNT DECREASED [None]
  - HEPATIC FAILURE [None]
  - MATERNAL EXPOSURE DURING PREGNANCY [None]
  - BLOOD PH DECREASED [None]
  - SUICIDE ATTEMPT [None]
  - INTENTIONAL DRUG MISUSE [None]
